FAERS Safety Report 6094207-8 (Version None)
Quarter: 2009Q1

REPORT INFORMATION
  Report Type: 
  Country: None (occurrence: None)
  Receive Date: 20090226
  Receipt Date: 20090213
  Transmission Date: 20090719
  Serious: Yes (Other)
  Sender: FDA-Public Use
  Company Number: PHHY2009BR05171

PATIENT
  Sex: Male
  Weight: 72 kg

DRUGS (2)
  1. CODATEN [Suspect]
     Dosage: 50 MG/DAY (1 TABLET/DAY)
     Route: 048
  2. VOLTAREN [Concomitant]
     Dosage: 1 DF TWICE WEEKLY

REACTIONS (3)
  - DRUG INEFFECTIVE [None]
  - INTERVERTEBRAL DISC PROTRUSION [None]
  - SURGERY [None]
